FAERS Safety Report 20693739 (Version 1)
Quarter: 2022Q2

REPORT INFORMATION
  Report Type: Report from Study
  Country: US (occurrence: US)
  Receive Date: 20220411
  Receipt Date: 20220411
  Transmission Date: 20220721
  Serious: Yes (Other)
  Sender: FDA-Public Use
  Company Number: US-AUROBINDO-AUR-APL-2022-011392

PATIENT

DRUGS (2)
  1. FUROSEMIDE [Suspect]
     Active Substance: FUROSEMIDE
     Indication: Lipid metabolism disorder
     Dosage: UNK
     Route: 065
  2. TRIHEPTANOIN [Suspect]
     Active Substance: TRIHEPTANOIN
     Indication: Lipid metabolism disorder
     Dosage: UNK
     Route: 065

REACTIONS (4)
  - Acute kidney injury [Unknown]
  - Hypochloraemia [Unknown]
  - Hyponatraemia [Unknown]
  - Dehydration [Unknown]
